FAERS Safety Report 4362910-3 (Version None)
Quarter: 2004Q2

REPORT INFORMATION
  Report Type: 
  Country: None (occurrence: None)
  Receive Date: 20040518
  Receipt Date: 20040503
  Transmission Date: 20050107
  Serious: Yes (Other)
  Sender: FDA-Public Use
  Company Number: 197183

PATIENT
  Sex: Female

DRUGS (2)
  1. AVONEX ^BIOGEN^ [Suspect]
     Indication: MULTIPLE SCLEROSIS
     Dosage: 30 MCG QW IM
     Route: 030
  2. AVONEX ^BIOGEN^ [Suspect]
     Indication: MULTIPLE SCLEROSIS
     Dosage: 30 MCG QW IM
     Route: 030

REACTIONS (2)
  - BRONCHOSPASM [None]
  - HYPERSENSITIVITY [None]
